FAERS Safety Report 7512241-5 (Version None)
Quarter: 2011Q2

REPORT INFORMATION
  Report Type: 
  Country: None (occurrence: None)
  Receive Date: 20110531
  Receipt Date: 20110519
  Transmission Date: 20111010
  Serious: Yes (Hospitalization)
  Sender: FDA-Public Use
  Company Number: BR-ASTRAZENECA-2011SE30163

PATIENT
  Age: 45 Year
  Sex: Female

DRUGS (5)
  1. CLONAZEPAM [Suspect]
  2. PROMETHAZINE [Suspect]
  3. PHENOBARBITAL TAB [Suspect]
  4. OXCARBAZEPINE [Suspect]
  5. QUETIAPINE [Suspect]
     Route: 048

REACTIONS (6)
  - COMA BLISTER [None]
  - DEPRESSED LEVEL OF CONSCIOUSNESS [None]
  - EPIDERMAL NECROSIS [None]
  - BLOOD CREATINE PHOSPHOKINASE INCREASED [None]
  - MIOSIS [None]
  - MULTIPLE DRUG OVERDOSE [None]
